FAERS Safety Report 7747769-6 (Version None)
Quarter: 2011Q3

REPORT INFORMATION
  Report Type: 
  Country: None (occurrence: None)
  Receive Date: 20110913
  Receipt Date: 20110901
  Transmission Date: 20111222
  Serious: Yes (Other)
  Sender: FDA-Public Use
  Company Number: US-ROCHE-798474

PATIENT

DRUGS (1)
  1. AVASTIN [Suspect]
     Dosage: DOSE: 3.75 MG(0.15ML) INDICATION: OCULAR USE
     Route: 031

REACTIONS (4)
  - PRODUCT QUALITY ISSUE [None]
  - EYE INFLAMMATION [None]
  - BLINDNESS [None]
  - EYE PAIN [None]
